FAERS Safety Report 14189647 (Version 2)
Quarter: 2022Q1

REPORT INFORMATION
  Report Type: Spontaneous
  Country: US (occurrence: US)
  Receive Date: 20171115
  Receipt Date: 20220311
  Transmission Date: 20220423
  Serious: Yes (Other)
  Sender: FDA-Public Use
  Company Number: PHEH2017US036511

PATIENT
  Age: 43 Year
  Sex: Female

DRUGS (3)
  1. TASIGNA [Suspect]
     Active Substance: NILOTINIB
     Indication: Chronic myeloid leukaemia
     Dosage: UNK
     Route: 065
     Dates: start: 20100201, end: 2012
  2. GLEEVEC [Suspect]
     Active Substance: IMATINIB MESYLATE
     Indication: Chronic myeloid leukaemia
     Route: 065
  3. SPRYCEL [Suspect]
     Active Substance: DASATINIB
     Indication: Chronic myeloid leukaemia
     Route: 065

REACTIONS (10)
  - Myocardial ischaemia [Unknown]
  - Peripheral vascular disorder [Unknown]
  - Myocardial infarction [Unknown]
  - Intermittent claudication [Unknown]
  - Peripheral arterial occlusive disease [Unknown]
  - Arteriosclerosis [Unknown]
  - Injury [Unknown]
  - Pain [Unknown]
  - Emotional distress [Unknown]
  - Anxiety [Unknown]

NARRATIVE: CASE EVENT DATE: 20120301
